FAERS Safety Report 22360916 (Version 1)
Quarter: 2023Q2

REPORT INFORMATION
  Report Type: Spontaneous
  Country: US (occurrence: None)
  Receive Date: 20230523
  Receipt Date: 20230523
  Transmission Date: 20230722
  Serious: Yes (Hospitalization)
  Sender: FDA-Public Use
  Company Number: None

PATIENT
  Sex: Male
  Weight: 132.45 kg

DRUGS (33)
  1. LENALIDOMIDE [Suspect]
     Active Substance: LENALIDOMIDE
     Indication: Plasmacytoma
     Dosage: OTHER FREQUENCY : 28 D CYCLE;?
     Route: 048
     Dates: start: 202305
  2. ALENDRONATE [Concomitant]
     Active Substance: ALENDRONATE SODIUM
  3. ALLOPURINOL [Concomitant]
     Active Substance: ALLOPURINOL
  4. AMLODIPINE [Concomitant]
     Active Substance: AMLODIPINE BESYLATE
  5. ASPIRIN [Concomitant]
     Active Substance: ASPIRIN
  6. ATORVASTATIN [Concomitant]
     Active Substance: ATORVASTATIN
  7. BUMETANIDE [Concomitant]
     Active Substance: BUMETANIDE
  8. DEXAMETHASONE [Concomitant]
     Active Substance: DEXAMETHASONE
  9. DICLOFENAC [Concomitant]
     Active Substance: DICLOFENAC
  10. ESCITALOPRAM [Concomitant]
     Active Substance: ESCITALOPRAM OXALATE
  11. FENTANYL [Concomitant]
     Active Substance: FENTANYL
  12. FERROUS SULFATE [Concomitant]
     Active Substance: FERROUS SULFATE
  13. FINASTERIDE [Concomitant]
     Active Substance: FINASTERIDE
  14. FOLIC ACID [Concomitant]
     Active Substance: FOLIC ACID
  15. LACTOBACILLUS ACIDOPHILUS [Concomitant]
     Active Substance: LACTOBACILLUS ACIDOPHILUS
  16. LATANOPROST [Concomitant]
     Active Substance: LATANOPROST
  17. LEVOTHYROXINE [Concomitant]
     Active Substance: LEVOTHYROXINE
  18. METAMUCIL [Concomitant]
     Active Substance: PLANTAGO SEED
  19. MINOXIDIL [Concomitant]
     Active Substance: MINOXIDIL
  20. VITAMINS [Concomitant]
     Active Substance: VITAMINS
  21. NITROSTAT [Concomitant]
     Active Substance: NITROGLYCERIN
  22. ONDANSETRON [Concomitant]
     Active Substance: ONDANSETRON
  23. OXYCODONE [Concomitant]
     Active Substance: OXYCODONE
  24. OYSTER SHELL CALCIUM 500 + D [Concomitant]
  25. PREDNISONE [Concomitant]
  26. ROPINIROLE [Concomitant]
     Active Substance: ROPINIROLE
  27. SIMETHICONE (DIMETHICONE) [Concomitant]
     Active Substance: DIMETHICONE
  28. TAMSULOSIN [Concomitant]
     Active Substance: TAMSULOSIN
  29. TIZANIDINE [Concomitant]
     Active Substance: TIZANIDINE
  30. TRAZODONE [Concomitant]
     Active Substance: TRAZODONE HYDROCHLORIDE
  31. VALACYCLOVIR [Concomitant]
     Active Substance: VALACYCLOVIR HYDROCHLORIDE
  32. VITAMIN B COMPLEX COMBINATIONS [Concomitant]
  33. VITAMIN C [Concomitant]
     Active Substance: ASCORBIC ACID

REACTIONS (1)
  - Asthenia [None]

NARRATIVE: CASE EVENT DATE: 20230522
